FAERS Safety Report 14313543 (Version 2)
Quarter: 2017Q4

REPORT INFORMATION
  Report Type: Report from Study
  Country: TR (occurrence: TR)
  Receive Date: 20171221
  Receipt Date: 20171229
  Transmission Date: 20180321
  Serious: Yes (Death)
  Sender: FDA-Public Use
  Company Number: TR-BEH-2017086167

PATIENT
  Age: 31 Year
  Sex: Female

DRUGS (2)
  1. PREDNISOLONE. [Concomitant]
     Active Substance: PREDNISOLONE
     Route: 065
  2. HUMAN IMMUNOGLOBULIN IV (GENERIC) [Suspect]
     Active Substance: HUMAN IMMUNOGLOBULIN G
     Indication: THROMBOCYTOPENIA

REACTIONS (5)
  - Bradycardia [Fatal]
  - Hypotension [Fatal]
  - Chest pain [Fatal]
  - Haematuria [Unknown]
  - Pulmonary embolism [Fatal]
